FAERS Safety Report 4807793-X (Version None)
Quarter: 2005Q4

REPORT INFORMATION
  Report Type: 
  Country: None (occurrence: None)
  Receive Date: 20051021
  Receipt Date: 20010724
  Transmission Date: 20060501
  Serious: No
  Sender: FDA-Public Use
  Company Number: US_010870687

PATIENT
  Age: 20 Year
  Sex: Female
  Weight: 55 kg

DRUGS (3)
  1. ZYPREXA [Suspect]
     Indication: BIPOLAR DISORDER
     Dosage: 20 MG/DAY
     Dates: start: 20010501
  2. PROZAC [Concomitant]
     Indication: BIPOLAR DISORDER
     Dates: start: 20010501
  3. ORTHO TRI-CYCLEN [Concomitant]

REACTIONS (6)
  - FEELING HOT [None]
  - GASTRIC DILATATION [None]
  - INCREASED APPETITE [None]
  - OLIGOMENORRHOEA [None]
  - TREMOR [None]
  - WEIGHT INCREASED [None]
